FAERS Safety Report 5916071-7 (Version None)
Quarter: 2008Q4

REPORT INFORMATION
  Report Type: 
  Country: None (occurrence: None)
  Receive Date: 20081013
  Receipt Date: 20080930
  Transmission Date: 20090506
  Serious: Yes (Other)
  Sender: FDA-Public Use
  Company Number: US-JNJFOC-20081000376

PATIENT
  Sex: Female
  Weight: 97.52 kg

DRUGS (3)
  1. HALDOL [Suspect]
     Route: 048
  2. HALDOL [Suspect]
     Indication: BIPOLAR DISORDER
     Route: 048
  3. INVEGA [Suspect]
     Indication: BIPOLAR DISORDER
     Route: 048

REACTIONS (11)
  - AMNESIA [None]
  - BLOOD GLUCOSE DECREASED [None]
  - DRUG INTOLERANCE [None]
  - EYE SWELLING [None]
  - HEADACHE [None]
  - HYPERSENSITIVITY [None]
  - HYPERTENSION [None]
  - NAUSEA [None]
  - RETCHING [None]
  - SINUS TACHYCARDIA [None]
  - SLEEP DISORDER [None]
